FAERS Safety Report 7733700-6 (Version None)
Quarter: 2011Q3

REPORT INFORMATION
  Report Type: 
  Country: None (occurrence: None)
  Receive Date: 20110901
  Receipt Date: 20110713
  Transmission Date: 20111222
  Serious: Yes (Other)
  Sender: FDA-Public Use
  Company Number: 2-0711-69

PATIENT
  Sex: Female

DRUGS (1)
  1. DERMA-SMOOTHE/FS (SCALP OIL) HILL DERMACEUTICALS, INC [Suspect]
     Dosage: TOPICAL
     Route: 061

REACTIONS (1)
  - ACCIDENTAL EXPOSURE [None]
